FAERS Safety Report 7462727-7 (Version None)
Quarter: 2011Q1

REPORT INFORMATION
  Report Type: 
  Country: None (occurrence: None)
  Receive Date: 20110302
  Receipt Date: 20100909
  Transmission Date: 20110831
  Serious: Yes (Death, Disabling, Other)
  Sender: FDA-Public Use
  Company Number: 163-21880-10031703

PATIENT
  Age: 72 Year
  Sex: Female
  Weight: 45.3597 kg

DRUGS (12)
  1. PROZAC [Concomitant]
  2. PROCRIT [Concomitant]
  3. DEXAMETHASONE [Concomitant]
  4. OSCAL 500 (CALCIUM CARBONATE) [Concomitant]
  5. REVLIMID [Suspect]
     Indication: MULTIPLE MYELOMA
     Dosage: 25 MG, DAILY FOR 3 WEEKS 1 WEEK OFF, PO, 10 MG, 1 IN 1 D, PO
     Route: 048
     Dates: start: 20090806
  6. REVLIMID [Suspect]
     Indication: MULTIPLE MYELOMA
     Dosage: 25 MG, DAILY FOR 3 WEEKS 1 WEEK OFF, PO, 10 MG, 1 IN 1 D, PO
     Route: 048
     Dates: start: 20100801, end: 20100801
  7. ASPIRIN [Concomitant]
  8. CENTRUM (CENTRUM) [Concomitant]
  9. NITROFUR MAC (NITROFURANTOIN) [Concomitant]
  10. PROMETHAZINE [Concomitant]
  11. DILAUDID [Concomitant]
  12. ATENOLOL [Concomitant]

REACTIONS (3)
  - DEEP VEIN THROMBOSIS [None]
  - OEDEMA PERIPHERAL [None]
  - DEATH [None]
